FAERS Safety Report 8325697-5 (Version None)
Quarter: 2012Q2

REPORT INFORMATION
  Report Type: 
  Country: None (occurrence: None)
  Receive Date: 20120501
  Receipt Date: 20120501
  Transmission Date: 20120825
  Serious: No
  Sender: FDA-Public Use
  Company Number: None

PATIENT
  Age: 27 Year
  Sex: Female
  Weight: 63.502 kg

DRUGS (1)
  1. MICRONOR [Suspect]
     Indication: ORAL CONTRACEPTION
     Dosage: 0.35 MG NORETHINDRONE
     Route: 048
     Dates: start: 20120411, end: 20120415

REACTIONS (10)
  - OROPHARYNGEAL BLISTERING [None]
  - PETECHIAE [None]
  - EPISTAXIS [None]
  - WOUND HAEMORRHAGE [None]
  - PLATELET COUNT DECREASED [None]
  - IMPAIRED WORK ABILITY [None]
  - TONGUE BLISTERING [None]
  - ARTHRALGIA [None]
  - CONTUSION [None]
  - SWELLING [None]
